FAERS Safety Report 18103060 (Version 1)
Quarter: 2020Q3

REPORT INFORMATION
  Report Type: Spontaneous
  Country: US (occurrence: US)
  Receive Date: 20200731
  Receipt Date: 20200731
  Transmission Date: 20201103
  Serious: Yes (Disabling, Other)
  Sender: FDA-Public Use
  Company Number: None

PATIENT
  Age: 35 Year
  Sex: Male
  Weight: 94.5 kg

DRUGS (3)
  1. TYLENOL [Concomitant]
     Active Substance: ACETAMINOPHEN
  2. SINGULAIR [Suspect]
     Active Substance: MONTELUKAST SODIUM
     Indication: MULTIPLE ALLERGIES
     Dosage: ?          QUANTITY:1 TABLET(S);?
     Route: 048
     Dates: start: 20200602, end: 20200731
  3. TUMS [Concomitant]
     Active Substance: CALCIUM CARBONATE

REACTIONS (10)
  - Fatigue [None]
  - Headache [None]
  - Dizziness [None]
  - Chest discomfort [None]
  - Dysphemia [None]
  - Seizure [None]
  - Hypersomnia [None]
  - SARS-CoV-2 test negative [None]
  - Confusional state [None]
  - Amnesia [None]

NARRATIVE: CASE EVENT DATE: 20200701
